FAERS Safety Report 19975264 (Version 1)
Quarter: 2021Q4

REPORT INFORMATION
  Report Type: Spontaneous
  Country: CA (occurrence: CA)
  Receive Date: 20211020
  Receipt Date: 20211020
  Transmission Date: 20220303
  Serious: Yes (Hospitalization)
  Sender: FDA-Public Use
  Company Number: CA-LUPIN PHARMACEUTICALS INC.-2021-19942

PATIENT
  Age: 37 Year
  Sex: Female

DRUGS (6)
  1. LORAZEPAM [Suspect]
     Active Substance: LORAZEPAM
     Indication: Schizoaffective disorder depressive type
     Dosage: 1 MILLIGRAM, TID
     Route: 065
  2. ZOPICLONE [Suspect]
     Active Substance: ZOPICLONE
     Indication: Schizoaffective disorder depressive type
     Dosage: 15 MILLIGRAM (IN THE DAYTIME)
     Route: 048
  3. ZOPICLONE [Suspect]
     Active Substance: ZOPICLONE
     Dosage: 7.5 MILLIGRAM, QD (AT BEDTIME)
     Route: 048
  4. RISPERDAL CONSTA [Concomitant]
     Active Substance: RISPERIDONE
     Indication: Schizoaffective disorder depressive type
     Dosage: UNK (37.5 IM Q.2 WEEKLY)
     Route: 030
  5. ZOLOFT [Concomitant]
     Active Substance: SERTRALINE HYDROCHLORIDE
     Indication: Schizoaffective disorder
     Dosage: 50 MILLIGRAM, QD AT BEDTIME
     Route: 048
  6. CLOZARIL [Concomitant]
     Active Substance: CLOZAPINE
     Indication: Schizoaffective disorder depressive type
     Dosage: 250 MILLIGRAM, QD AT BEDTIME
     Route: 048

REACTIONS (6)
  - Paradoxical drug reaction [Recovering/Resolving]
  - Agitation [Recovering/Resolving]
  - Condition aggravated [Recovering/Resolving]
  - Aggression [Recovering/Resolving]
  - Catatonia [Recovering/Resolving]
  - Off label use [Unknown]
